FAERS Safety Report 20028808 (Version 1)
Quarter: 2021Q4

REPORT INFORMATION
  Report Type: Spontaneous
  Country: US (occurrence: None)
  Receive Date: 20211102
  Receipt Date: 20211102
  Transmission Date: 20220303
  Serious: Yes (Hospitalization)
  Sender: FDA-Public Use
  Company Number: None

PATIENT
  Sex: Female

DRUGS (14)
  1. WELIREG [Suspect]
     Active Substance: BELZUTIFAN
     Indication: Renal cell carcinoma
     Dosage: FREQUENCY : DAILY;?
     Route: 048
  2. CARVEDILOL [Concomitant]
     Active Substance: CARVEDILOL
  3. AMLODIPINE [Concomitant]
     Active Substance: AMLODIPINE BESYLATE
  4. LOSARTAN [Concomitant]
     Active Substance: LOSARTAN
  5. LEVOTHYROXINE [Concomitant]
     Active Substance: LEVOTHYROXINE
  6. NOVOLOG [Concomitant]
     Active Substance: INSULIN ASPART
  7. BASAGLAR [Concomitant]
     Active Substance: INSULIN GLARGINE
  8. TYLENOL [Concomitant]
     Active Substance: ACETAMINOPHEN
  9. VITMAIN C [Concomitant]
  10. VITAMIN B12 [Concomitant]
     Active Substance: CYANOCOBALAMIN
  11. VITAMIN D3 [Concomitant]
     Active Substance: CHOLECALCIFEROL
  12. CALCIU ACETATE [Concomitant]
  13. FISH OIL [Concomitant]
     Active Substance: FISH OIL
  14. CHOLESTOFF [Concomitant]

REACTIONS (3)
  - Headache [None]
  - Oxygen saturation decreased [None]
  - Therapy cessation [None]
